FAERS Safety Report 10589526 (Version 1)
Quarter: 2014Q4

REPORT INFORMATION
  Report Type: Spontaneous
  Country: US (occurrence: None)
  Receive Date: 20141114
  Receipt Date: 20141114
  Transmission Date: 20150529
  Serious: No
  Sender: FDA-Public Use
  Company Number: C-14-139

PATIENT
  Sex: Female

DRUGS (1)
  1. PHENTERMINE [Suspect]
     Active Substance: PHENTERMINE
     Indication: WEIGHT INCREASED
     Route: 048
     Dates: start: 2014

REACTIONS (4)
  - Asthenia [None]
  - Product substitution issue [None]
  - Hair texture abnormal [None]
  - Drug ineffective [None]

NARRATIVE: CASE EVENT DATE: 2014
